FAERS Safety Report 22949662 (Version 2)
Quarter: 2023Q4

REPORT INFORMATION
  Report Type: Spontaneous
  Country: DE (occurrence: DE)
  Receive Date: 20230915
  Receipt Date: 20231208
  Transmission Date: 20240109
  Serious: Yes (Other)
  Sender: FDA-Public Use
  Company Number: DE-002147023-NVSC2023DE197925

PATIENT
  Sex: Female
  Weight: 74 kg

DRUGS (5)
  1. LETROZOLE [Suspect]
     Active Substance: LETROZOLE
     Indication: Hormone receptor positive HER2 negative breast cancer
     Dosage: 2.5 MG, QD
     Route: 048
     Dates: start: 20200522
  2. IBRANCE [Concomitant]
     Active Substance: PALBOCICLIB
     Indication: Breast cancer metastatic
     Dosage: 100 MG (21 DAYS OF ADMINISTRATION, 7 DAYS PAUSE)
     Route: 048
     Dates: start: 20200807, end: 20201001
  3. IBRANCE [Concomitant]
     Active Substance: PALBOCICLIB
     Dosage: 125 MG (21 DAYS OF ADMINISTRATION, 7 DAYS PAUSE)
     Route: 048
     Dates: start: 20201002, end: 20210706
  4. IBRANCE [Concomitant]
     Active Substance: PALBOCICLIB
     Dosage: 100 MG (21 DAYS OF ADMINISTRATION, 7 DAYS PAUSE)
     Route: 048
     Dates: start: 20210707, end: 20230605
  5. IBRANCE [Concomitant]
     Active Substance: PALBOCICLIB
     Dosage: 75 MG (0 ? 3 ? 0) (3X25 MG) (21 DAYS OF ADMINISTRATION, 7 DAYS PAUSE)
     Route: 048
     Dates: start: 20230622

REACTIONS (3)
  - Leukopenia [Not Recovered/Not Resolved]
  - Neutropenia [Not Recovered/Not Resolved]
  - Thrombocytopenia [Not Recovered/Not Resolved]

NARRATIVE: CASE EVENT DATE: 20220615
